FAERS Safety Report 7338830-9 (Version None)
Quarter: 2011Q1

REPORT INFORMATION
  Report Type: 
  Country: None (occurrence: None)
  Receive Date: 20110308
  Receipt Date: 20110301
  Transmission Date: 20110831
  Serious: Yes (Hospitalization)
  Sender: FDA-Public Use
  Company Number: PHHO2011US01354

PATIENT
  Sex: Female

DRUGS (2)
  1. CERTICAN [Suspect]
     Indication: RENAL TRANSPLANT
     Dosage: UNK
     Route: 048
     Dates: start: 20110108
  2. TACROLIMUS [Concomitant]
     Indication: RENAL TRANSPLANT
     Dosage: UNK
     Route: 048
     Dates: start: 20110108

REACTIONS (7)
  - HYPERTENSION [None]
  - TACHYCARDIA [None]
  - ENDOTRACHEAL INTUBATION [None]
  - RESPIRATORY FAILURE [None]
  - PULMONARY OEDEMA [None]
  - DYSPNOEA [None]
  - CONTINUOUS POSITIVE AIRWAY PRESSURE [None]
